FAERS Safety Report 26106152 (Version 1)
Quarter: 2025Q4

REPORT INFORMATION
  Report Type: Spontaneous
  Country: US (occurrence: US)
  Receive Date: 20251201
  Receipt Date: 20251201
  Transmission Date: 20260118
  Serious: Yes (Hospitalization)
  Sender: CSL BEHRING
  Company Number: US-CSL-12517

PATIENT
  Age: 35 Year
  Sex: Female

DRUGS (3)
  1. PRIVIGEN [Suspect]
     Active Substance: HUMAN IMMUNOGLOBULIN G
     Indication: Myopathy toxic
     Dosage: 160 G, QMT
     Route: 042
     Dates: start: 202501
  2. HEPARIN LOCK FLUSH [Concomitant]
     Active Substance: HEPARIN SODIUM
  3. SODIUM CHLORIDE [Concomitant]
     Active Substance: SODIUM CHLORIDE

REACTIONS (6)
  - Muscle spasms [Unknown]
  - Urine output decreased [Unknown]
  - Dyspnoea [Unknown]
  - Influenza [Unknown]
  - Dehydration [Unknown]
  - Off label use [Unknown]

NARRATIVE: CASE EVENT DATE: 20250101
